FAERS Safety Report 6247037-8 (Version None)
Quarter: 2009Q2

REPORT INFORMATION
  Report Type: 
  Country: None (occurrence: None)
  Receive Date: 20090624
  Receipt Date: 20090624
  Transmission Date: 20091009
  Serious: Yes (Life-Threatening)
  Sender: FDA-Public Use
  Company Number: None

PATIENT
  Age: 41 Year
  Sex: Male
  Weight: 77 kg

DRUGS (5)
  1. HYDROMORPHONE HCL [Suspect]
     Indication: PAIN
     Dosage: 0/0.4/15 PCA
     Dates: start: 20090518, end: 20090519
  2. ALLOPURINOL [Concomitant]
  3. VANCOMYCIN [Concomitant]
  4. ZOSYN [Concomitant]
  5. HYDROXYUREA [Concomitant]

REACTIONS (3)
  - HYPOXIA [None]
  - SOMNOLENCE [None]
  - UNRESPONSIVE TO STIMULI [None]
